FAERS Safety Report 7280858-1 (Version None)
Quarter: 2011Q1

REPORT INFORMATION
  Report Type: 
  Country: None (occurrence: None)
  Receive Date: 20110208
  Receipt Date: 20110203
  Transmission Date: 20110831
  Serious: Yes (Death, Other)
  Sender: FDA-Public Use
  Company Number: US-PFIZER INC-2010141222

PATIENT
  Sex: Male

DRUGS (3)
  1. CHANTIX [Suspect]
     Indication: SMOKING CESSATION THERAPY
     Dosage: 1 MG, 1X/DAY
     Route: 048
     Dates: start: 20070725, end: 20080130
  2. RISPERDAL [Concomitant]
     Indication: MENTAL DISORDER
     Dosage: UNK
     Dates: start: 20050801, end: 20080401
  3. ABILIFY [Concomitant]
     Indication: MENTAL DISORDER
     Dosage: UNK
     Dates: start: 20050301, end: 20080401

REACTIONS (3)
  - ANXIETY [None]
  - COMPLETED SUICIDE [None]
  - DEPRESSION [None]
